FAERS Safety Report 12227557 (Version 1)
Quarter: 2016Q1

REPORT INFORMATION
  Report Type: Other
  Country: TR (occurrence: TR)
  Receive Date: 20160331
  Receipt Date: 20160331
  Transmission Date: 20160526
  Serious: Yes (Death, Hospitalization, Other)
  Sender: FDA-Public Use
  Company Number: TR-AMPHASTAR PHARMACEUTICALS, INC.-1050087

PATIENT
  Age: 54 Year
  Sex: Male
  Weight: 65 kg

DRUGS (3)
  1. LOW MOLECULAR WEIGHT HEPARIN; ENOXAPARIN SODIUM [Suspect]
     Active Substance: ENOXAPARIN SODIUM
  2. ASPIRIN. [Suspect]
     Active Substance: ASPIRIN
  3. TICAGRELOR [Suspect]
     Active Substance: TICAGRELOR

REACTIONS (10)
  - Cardiac arrest [Recovered/Resolved]
  - Pulmonary alveolar haemorrhage [Unknown]
  - Arterial occlusive disease [Unknown]
  - Chest pain [Unknown]
  - Hypoxic-ischaemic encephalopathy [Unknown]
  - Tachypnoea [Unknown]
  - Acute respiratory distress syndrome [Unknown]
  - Septic shock [Fatal]
  - Death [Fatal]
  - Dyspnoea [Unknown]
